FAERS Safety Report 8818633 (Version 2)
Quarter: 2015Q3

REPORT INFORMATION
  Report Type: Report from Study
  Country: US (occurrence: US)
  Receive Date: 20121001
  Receipt Date: 20150702
  Transmission Date: 20151125
  Serious: Yes (Death)
  Sender: FDA-Public Use
  Company Number: US-ROCHE-1129535

PATIENT
  Sex: Female
  Weight: 44.04 kg

DRUGS (29)
  1. RIFAMPIN. [Concomitant]
     Active Substance: RIFAMPIN
     Route: 065
  2. PROTONIX (UNITED STATES) [Concomitant]
  3. COMPAZINE [Concomitant]
     Active Substance: PROCHLORPERAZINE MALEATE
     Dosage: AS NECESSARY
     Route: 065
  4. AREDIA [Concomitant]
     Active Substance: PAMIDRONATE DISODIUM
     Route: 042
  5. METHYLENE DIOXYAMPHETAMINE [Concomitant]
     Active Substance: METHYLENEDIOXYMETHAMPHETAMINE
     Dosage: AS NECESSARY
     Route: 065
  6. CEFTRIAXONE. [Concomitant]
     Active Substance: CEFTRIAXONE
     Route: 042
  7. PAMIDRONATE [Concomitant]
     Active Substance: PAMIDRONATE DISODIUM
     Route: 042
  8. CISPLATIN. [Concomitant]
     Active Substance: CISPLATIN
     Route: 065
  9. BENADRYL [Concomitant]
     Active Substance: DIPHENHYDRAMINE HYDROCHLORIDE
     Route: 042
  10. CALTRATE [Concomitant]
     Active Substance: CALCIUM CARBONATE
     Route: 065
  11. ZYVOX [Concomitant]
     Active Substance: LINEZOLID
     Route: 065
  12. RIFAMPIN. [Concomitant]
     Active Substance: RIFAMPIN
     Route: 065
  13. GEMZAR [Concomitant]
     Active Substance: GEMCITABINE HYDROCHLORIDE
     Route: 065
  14. ARANESP [Concomitant]
     Active Substance: DARBEPOETIN ALFA
     Route: 058
  15. HERCEPTIN [Suspect]
     Active Substance: TRASTUZUMAB
     Indication: BLADDER CANCER
     Route: 042
     Dates: start: 20070926
  16. RESTORIL [Concomitant]
     Active Substance: TEMAZEPAM
     Dosage: BEDTIME
     Route: 065
  17. BENZONATATE. [Concomitant]
     Active Substance: BENZONATATE
     Route: 065
  18. TESSALON [Concomitant]
     Active Substance: BENZONATATE
     Route: 065
  19. INFLUENZA VACCINE [Concomitant]
     Active Substance: INFLUENZA VIRUS VACCINE
  20. DOCETAXEL. [Concomitant]
     Active Substance: DOCETAXEL
     Route: 065
  21. ZITHROMAX [Concomitant]
     Active Substance: AZITHROMYCIN DIHYDRATE
     Route: 065
  22. MOBIC [Concomitant]
     Active Substance: MELOXICAM
  23. DECADRON [Concomitant]
     Active Substance: DEXAMETHASONE
     Route: 065
  24. TYLENOL [Concomitant]
     Active Substance: ACETAMINOPHEN
     Dosage: AS NECESSARY
     Route: 065
  25. IBUPROFEN. [Concomitant]
     Active Substance: IBUPROFEN
     Route: 065
  26. CEFDINIR. [Concomitant]
     Active Substance: CEFDINIR
     Route: 065
  27. LEVAQUIN [Concomitant]
     Active Substance: LEVOFLOXACIN
     Route: 065
  28. MUCINEX [Concomitant]
     Active Substance: GUAIFENESIN
     Route: 065
  29. BACTRIM [Concomitant]
     Active Substance: SULFAMETHOXAZOLE\TRIMETHOPRIM
     Route: 065

REACTIONS (20)
  - Dysphagia [Unknown]
  - Fatigue [Unknown]
  - Muscular weakness [Unknown]
  - Anaemia [Unknown]
  - Oropharyngeal pain [Unknown]
  - Disease progression [Unknown]
  - Bronchitis [Unknown]
  - Death [Fatal]
  - Hypotension [Unknown]
  - Pain [Unknown]
  - Dermatitis [Unknown]
  - Dyspnoea [Unknown]
  - Musculoskeletal pain [Unknown]
  - Heart rate increased [Unknown]
  - Oesophagitis [Unknown]
  - Chest pain [Unknown]
  - Sputum discoloured [Unknown]
  - Swelling face [Unknown]
  - Off label use [Unknown]
  - Weight decreased [Unknown]
